FAERS Safety Report 6558498-9 (Version None)
Quarter: 2010Q1

REPORT INFORMATION
  Report Type: 
  Country: None (occurrence: None)
  Receive Date: 20100129
  Receipt Date: 20100121
  Transmission Date: 20100710
  Serious: Yes (Hospitalization)
  Sender: FDA-Public Use
  Company Number: JP-JNJFOC-20100110208

PATIENT
  Sex: Male

DRUGS (17)
  1. NAUZELIN [Suspect]
     Indication: NAUSEA
     Route: 048
  2. CRAVIT [Suspect]
     Indication: GLAUCOMA
     Route: 065
  3. BROMOCRIPTINE MESYLATE [Suspect]
     Indication: PARKINSON'S DISEASE
     Route: 048
  4. AKINETON [Suspect]
     Indication: PARKINSON'S DISEASE
     Route: 048
  5. MYONAL [Suspect]
     Indication: MUSCLE TIGHTNESS
     Route: 048
  6. JUVELA [Suspect]
     Indication: PERIPHERAL CIRCULATORY FAILURE
     Route: 048
  7. TIZANIDINE HCL [Suspect]
     Indication: MUSCLE TIGHTNESS
     Route: 048
  8. SELEGILINE HYDROCHLORIDE [Suspect]
     Indication: PARKINSON'S DISEASE
     Route: 048
  9. RIVOTRIL [Suspect]
     Indication: PARKINSON'S DISEASE
     Route: 048
  10. EXCEGRAN [Suspect]
     Indication: PARKINSON'S DISEASE
     Route: 048
  11. SYMMETREL [Suspect]
     Indication: PARKINSON'S DISEASE
     Route: 048
  12. VOLTAREN [Suspect]
     Indication: PERIARTHRITIS
     Route: 048
  13. YOKUKAN-SAN [Suspect]
     Indication: DYSTHYMIC DISORDER
     Route: 048
  14. AZULAVINE [Suspect]
     Indication: GLAUCOMA
     Route: 065
  15. XALATAN [Suspect]
     Indication: GLAUCOMA
     Route: 065
  16. MENESIT [Suspect]
     Indication: PARKINSON'S DISEASE
     Route: 048
  17. OTHER THERAPEUTIC MEDICATION [Concomitant]
     Route: 065

REACTIONS (4)
  - DRUG TOXICITY [None]
  - OFF LABEL USE [None]
  - RENAL IMPAIRMENT [None]
  - SOMNOLENCE [None]
